FAERS Safety Report 5137966-0 (Version None)
Quarter: 2006Q4

REPORT INFORMATION
  Report Type: 
  Country: None (occurrence: None)
  Receive Date: 20061030
  Receipt Date: 20060324
  Transmission Date: 20070319
  Serious: No
  Sender: FDA-Public Use
  Company Number: US-GLAXOSMITHKLINE-A0598959A

PATIENT
  Age: 60 Year
  Sex: Female

DRUGS (12)
  1. ADVAIR HFA [Suspect]
     Indication: ASTHMA
     Dosage: 1PUFF PER DAY
     Route: 055
  2. LIPITOR [Concomitant]
  3. ALBUTEROL [Concomitant]
  4. LISINOPRIL [Concomitant]
  5. VERAPAMIL [Concomitant]
  6. SINGULAIR [Concomitant]
  7. PRILOSEC [Concomitant]
  8. PAIN MEDICATION [Concomitant]
  9. ASPIRIN [Concomitant]
  10. VITAMIN E [Concomitant]
  11. ASCORBIC ACID [Concomitant]
  12. FISH OIL [Concomitant]

REACTIONS (1)
  - COUGH [None]
